FAERS Safety Report 23859787 (Version 1)
Quarter: 2024Q2

REPORT INFORMATION
  Report Type: Report from Study
  Country: CA (occurrence: CA)
  Receive Date: 20240515
  Receipt Date: 20240515
  Transmission Date: 20240715
  Serious: Yes (Other)
  Sender: FDA-Public Use
  Company Number: CA-AKCEA THERAPEUTICS, INC.-2024IS004472

PATIENT

DRUGS (14)
  1. TEGSEDI [Suspect]
     Active Substance: INOTERSEN SODIUM
     Indication: Hereditary neuropathic amyloidosis
     Dosage: 284 MILLIGRAM, QW
     Route: 058
  2. TEGSEDI [Suspect]
     Active Substance: INOTERSEN SODIUM
     Dosage: 284 MILLIGRAM, QW
     Route: 058
     Dates: start: 20200421
  3. LASIX [Concomitant]
     Active Substance: FUROSEMIDE
     Indication: Hypotension
     Dosage: UNK
     Route: 065
  4. CLARITIN [Concomitant]
     Active Substance: LORATADINE
     Indication: Hypersensitivity
     Dosage: UNK, QD
     Route: 048
  5. ASCORBIC ACID W/VITAMIN D NOS [Concomitant]
     Indication: Supplementation therapy
     Dosage: 1000 MG, QD
     Route: 048
  6. VAGISIL [BENZOCAINE] [Concomitant]
     Indication: Vulvovaginal dryness
     Dosage: UNK UNK, PRN
     Route: 061
  7. MIDODRINE [Concomitant]
     Active Substance: MIDODRINE
     Indication: Hypotension
     Dosage: GRADUATED: 1TAB BID, 2TABS BID, 1TABS TID
     Route: 048
     Dates: start: 2020
  8. VENIXXA [Concomitant]
     Indication: Haemorrhoids
     Dosage: UNK, PRN
     Route: 065
  9. LOPERAMIDE HYDROCHLORIDE [Concomitant]
     Active Substance: LOPERAMIDE HYDROCHLORIDE
     Indication: Diarrhoea
     Dosage: UNK
     Route: 065
  10. RETINOL [Concomitant]
     Active Substance: RETINOL
     Indication: Vitamin A deficiency
     Dosage: 10,000, QD
     Route: 065
  11. FOSFOMYCIN [Concomitant]
     Active Substance: FOSFOMYCIN
     Indication: Urinary tract infection
     Dosage: APPROX. EVERY 2 MONTHS
     Route: 048
     Dates: start: 2012
  12. NAPHAZOLINE HYDROCHLORIDE [Concomitant]
     Active Substance: NAPHAZOLINE HYDROCHLORIDE
     Indication: Dry eye
     Dosage: UNK, PRN
     Route: 047
  13. BISACODYL [Concomitant]
     Active Substance: BISACODYL
     Indication: Constipation
     Dosage: UNK, PRN
     Route: 065
  14. ERGOCALCIFEROL [Concomitant]
     Active Substance: ERGOCALCIFEROL
     Indication: Supplementation therapy
     Dosage: 1000 MILLIGRAM, QD WITH VIT C
     Route: 048

REACTIONS (7)
  - Neuropathy peripheral [Unknown]
  - Dysstasia [Unknown]
  - Localised oedema [Unknown]
  - Weight increased [Unknown]
  - Disease progression [Not Recovered/Not Resolved]
  - Neuralgia [Unknown]
  - Oedema peripheral [Recovering/Resolving]
